FAERS Safety Report 8452455-3 (Version None)
Quarter: 2012Q2

REPORT INFORMATION
  Report Type: 
  Country: None (occurrence: None)
  Receive Date: 20120620
  Receipt Date: 20120613
  Transmission Date: 20120825
  Serious: No
  Sender: FDA-Public Use
  Company Number: US-PFIZER INC-2012143597

PATIENT
  Sex: Female
  Weight: 72.562 kg

DRUGS (8)
  1. AMITRIPTYLINE [Concomitant]
     Indication: ABDOMINAL PAIN
     Dosage: 10 MG, DAILY
  2. LYRICA [Suspect]
     Dosage: 150 MG, DAILY
     Route: 048
  3. WELCHOL [Concomitant]
     Dosage: 1250 MG, 3X/DAY
     Route: 048
  4. LYRICA [Suspect]
     Indication: NERVOUS SYSTEM DISORDER
     Dosage: UNK
     Dates: start: 20100324
  5. LYRICA [Suspect]
     Dosage: UNK
     Dates: end: 20120611
  6. AMLODIPINE BESYLATE AND BENAZEPRIL HCL [Concomitant]
     Indication: HYPERTENSION
     Dosage: 5/10 MG DAILY
  7. MELOXICAM [Concomitant]
     Indication: ARTHRITIS
     Dosage: 15 MG, DAILY
  8. LYRICA [Suspect]
     Dosage: 150 MG, 2X/DAY
     Dates: start: 20120614

REACTIONS (8)
  - DIARRHOEA [None]
  - ABDOMINAL PAIN UPPER [None]
  - PAIN [None]
  - FEELING COLD [None]
  - MALAISE [None]
  - NAUSEA [None]
  - FEELING ABNORMAL [None]
  - FEELING HOT [None]
